FAERS Safety Report 11919509 (Version 2)
Quarter: 2016Q1

REPORT INFORMATION
  Report Type: Report from Study
  Country: US (occurrence: US)
  Receive Date: 20160115
  Receipt Date: 20160202
  Transmission Date: 20160526
  Serious: No
  Sender: FDA-Public Use
  Company Number: US-AMGEN-USASP2016002293

PATIENT
  Age: 44 Year
  Sex: Female

DRUGS (1)
  1. ENBREL [Suspect]
     Active Substance: ETANERCEPT
     Indication: RHEUMATOID ARTHRITIS
     Dosage: 50 MG, QWK
     Route: 065
     Dates: start: 20151230

REACTIONS (5)
  - Drug hypersensitivity [Unknown]
  - Device use error [Unknown]
  - Incorrect dose administered [Unknown]
  - Injection site pain [Unknown]
  - Injection site extravasation [Unknown]

NARRATIVE: CASE EVENT DATE: 20160106
